FAERS Safety Report 20553192 (Version 1)
Quarter: 2022Q1

REPORT INFORMATION
  Report Type: Spontaneous
  Country: US (occurrence: US)
  Receive Date: 20220304
  Receipt Date: 20220304
  Transmission Date: 20220423
  Serious: Yes (Hospitalization)
  Sender: FDA-Public Use
  Company Number: US-MYLANLABS-2022M1017009

PATIENT
  Age: 68 Year
  Sex: Female

DRUGS (3)
  1. CIDOFOVIR [Suspect]
     Active Substance: CIDOFOVIR
     Indication: Polyomavirus-associated nephropathy
     Dosage: 2.5 MILLIGRAM/KILOGRAM
     Route: 042
  2. TACROLIMUS [Concomitant]
     Active Substance: TACROLIMUS
     Indication: Immunosuppressant drug therapy
     Dosage: UNK
     Route: 065
  3. SIROLIMUS [Concomitant]
     Active Substance: SIROLIMUS
     Indication: Immunosuppressant drug therapy
     Dosage: UNK
     Route: 065

REACTIONS (2)
  - Blood creatinine increased [Unknown]
  - Off label use [Unknown]
